FAERS Safety Report 15231699 (Version 1)
Quarter: 2018Q3

REPORT INFORMATION
  Report Type: Spontaneous
  Country: US (occurrence: US)
  Receive Date: 20180802
  Receipt Date: 20180802
  Transmission Date: 20181010
  Serious: Yes (Hospitalization)
  Sender: FDA-Public Use
  Company Number: US-APOTEX-2018AP018456

PATIENT
  Age: 5 Year
  Sex: Male
  Weight: 18.6 kg

DRUGS (1)
  1. TRAZODONE HYDROCHLORIDE. [Suspect]
     Active Substance: TRAZODONE HYDROCHLORIDE
     Indication: PRODUCT USED FOR UNKNOWN INDICATION
     Dosage: 200 MG (ESTIMATED DOSE) (10.75 MG/KG), SINGLE
     Route: 048

REACTIONS (5)
  - Somnolence [Recovered/Resolved]
  - Accidental overdose [Unknown]
  - Accidental exposure to product by child [Unknown]
  - Ataxia [Recovered/Resolved]
  - Dysarthria [Recovered/Resolved]
